FAERS Safety Report 9225045 (Version 2)
Quarter: 2013Q2

REPORT INFORMATION
  Report Type: Spontaneous
  Country: US (occurrence: US)
  Receive Date: 20130411
  Receipt Date: 20130627
  Transmission Date: 20140414
  Serious: Yes (Hospitalization, Other)
  Sender: FDA-Public Use
  Company Number: US-UCBSA-082374

PATIENT
  Age: 49 Year
  Sex: Male
  Weight: 90.71 kg

DRUGS (17)
  1. KEPPRA XR [Suspect]
  2. COUMADIN [Concomitant]
  3. SYNTHROID [Concomitant]
  4. TIGAN [Concomitant]
  5. PRILOSEC [Concomitant]
  6. CYMBALTA [Concomitant]
  7. INDERAL [Concomitant]
  8. MS CONTIN [Concomitant]
  9. FLOMAX [Concomitant]
  10. VALIUM [Concomitant]
  11. NAMENDA [Concomitant]
  12. EXELON [Concomitant]
     Dosage: PATCH
  13. DIOVAN HCTZ [Concomitant]
     Dosage: 160/25
  14. VENTOLIN [Concomitant]
     Dosage: 2 PUFFS 4 TIMES A DAY
     Route: 055
  15. EFFEXOR XR [Concomitant]
     Dosage: EXTENDED RELEASE
  16. VITAMIN C [Concomitant]
     Dosage: 500 MG
  17. VITAMIN D3 [Concomitant]
     Dosage: 2000 IU

REACTIONS (5)
  - Convulsion [Recovered/Resolved]
  - Fall [Recovered/Resolved]
  - Head injury [Recovered/Resolved]
  - Inappropriate schedule of drug administration [Unknown]
  - Overdose [Unknown]
